FAERS Safety Report 5367468-8 (Version None)
Quarter: 2007Q2

REPORT INFORMATION
  Report Type: 
  Country: None (occurrence: None)
  Receive Date: 20070622
  Receipt Date: 20060824
  Transmission Date: 20071010
  Serious: No
  Sender: FDA-Public Use
  Company Number: US-ASTRAZENECA-2006UW16842

PATIENT
  Age: 49 Year
  Sex: Male
  Weight: 136.1 kg

DRUGS (1)
  1. PULMICORT [Suspect]
     Indication: ASTHMA
     Route: 055

REACTIONS (3)
  - COUGH [None]
  - DEVICE MALFUNCTION [None]
  - DYSPNOEA [None]
